FAERS Safety Report 21440920 (Version 1)
Quarter: 2022Q4

REPORT INFORMATION
  Report Type: Spontaneous
  Country: CA (occurrence: CA)
  Receive Date: 20221011
  Receipt Date: 20221011
  Transmission Date: 20230113
  Serious: Yes (Other)
  Sender: FDA-Public Use
  Company Number: CA-NOVARTISPH-NVSC2022CA227033

PATIENT
  Age: 79 Year
  Sex: Female

DRUGS (4)
  1. DEXAMETHASONE [Suspect]
     Active Substance: DEXAMETHASONE
     Indication: Product used for unknown indication
     Dosage: UNK
     Route: 065
  2. IBRUTINIB [Suspect]
     Active Substance: IBRUTINIB
     Indication: Product used for unknown indication
     Dosage: UNK
     Route: 065
  3. CHLORAMBUCIL [Concomitant]
     Active Substance: CHLORAMBUCIL
     Indication: Product used for unknown indication
     Dosage: UNK
     Route: 065
     Dates: start: 2016
  4. OBINUTUZUMAB [Concomitant]
     Active Substance: OBINUTUZUMAB
     Indication: Product used for unknown indication
     Dosage: UNK
     Route: 065
     Dates: start: 2016

REACTIONS (5)
  - Chronic lymphocytic leukaemia [Unknown]
  - Thrombocytopenia [Unknown]
  - Immune thrombocytopenia [Unknown]
  - Drug intolerance [Unknown]
  - Treatment failure [Unknown]

NARRATIVE: CASE EVENT DATE: 20220801
